FAERS Safety Report 16326880 (Version 1)
Quarter: 2019Q2

REPORT INFORMATION
  Report Type: Report from Study
  Country: DE (occurrence: DE)
  Receive Date: 20190517
  Receipt Date: 20190517
  Transmission Date: 20190711
  Serious: Yes (Hospitalization)
  Sender: FDA-Public Use
  Company Number: DE-MYLANLABS-2019M1046136

PATIENT
  Age: 47 Year
  Sex: Female
  Weight: 82.5 kg

DRUGS (6)
  1. XGEVA [Suspect]
     Active Substance: DENOSUMAB
     Indication: METASTASES TO BONE
     Dosage: 120 MILLIGRAM, Q28D
     Route: 042
     Dates: start: 20180328
  2. PERTUZUMAB. [Suspect]
     Active Substance: PERTUZUMAB
     Indication: BREAST CANCER
     Dosage: 840 MILLIGRAM, Q21D (LAST DOSES OF PERTUZUMAB PRIOR TO EVENT ERYSIPELAS WERE GIVEN ON 09/MAY/2018)
     Route: 042
     Dates: start: 20171122
  3. TRASTUZUMAB. [Suspect]
     Active Substance: TRASTUZUMAB
     Indication: BREAST CANCER
     Dosage: 640 MILLIGRAM, Q21D (LAST DOSES OF TRASTUZUMAB PRIOR TO EVENT ERYSIPELAS WERE GIVEN ON 09/MAY/2018)
     Route: 042
     Dates: start: 20171122
  4. TRASTUZUMAB. [Suspect]
     Active Substance: TRASTUZUMAB
     Dosage: 483 MILLIGRAM, Q21D
     Route: 042
     Dates: start: 20180621
  5. XGEVA [Suspect]
     Active Substance: DENOSUMAB
     Dosage: 120 MILLIGRAM, Q28D
     Route: 042
     Dates: start: 20180706
  6. PERTUZUMAB. [Suspect]
     Active Substance: PERTUZUMAB
     Dosage: 420 MILLIGRAM, Q21D
     Route: 042
     Dates: start: 20180621

REACTIONS (5)
  - Ocular hyperaemia [Recovered/Resolved]
  - Lacrimation increased [Recovered/Resolved]
  - Infection [Unknown]
  - Pruritus [Recovered/Resolved]
  - Erysipelas [Recovered/Resolved]

NARRATIVE: CASE EVENT DATE: 20180524
